FAERS Safety Report 13630822 (Version 1)
Quarter: 2017Q2

REPORT INFORMATION
  Report Type: Spontaneous
  Country: FR (occurrence: FR)
  Receive Date: 20170608
  Receipt Date: 20170608
  Transmission Date: 20170830
  Serious: Yes (Other)
  Sender: FDA-Public Use
  Company Number: FR-MERCK KGAA-2021705

PATIENT
  Sex: Female

DRUGS (3)
  1. ALFACALCIDOL [Concomitant]
     Active Substance: ALFACALCIDOL
  2. CYNOMEL [Concomitant]
     Active Substance: LIOTHYRONINE SODIUM
  3. NOVOTHYROX [Suspect]
     Active Substance: LEVOTHYROXINE SODIUM
     Indication: PRODUCT USED FOR UNKNOWN INDICATION

REACTIONS (7)
  - Uterine polyp [Unknown]
  - Blood pressure decreased [Unknown]
  - Blood thyroid stimulating hormone decreased [Unknown]
  - Arthralgia [Unknown]
  - Sleep disorder [Unknown]
  - Palpitations [Unknown]
  - Fatigue [Not Recovered/Not Resolved]
